FAERS Safety Report 4506390-3 (Version None)
Quarter: 2004Q4

REPORT INFORMATION
  Report Type: 
  Country: None (occurrence: None)
  Receive Date: 20041025
  Receipt Date: 20040309
  Transmission Date: 20050328
  Serious: Yes (Hospitalization, Other)
  Sender: FDA-Public Use
  Company Number: US-JNJFOC-20040105673

PATIENT
  Age: 16 Year
  Sex: Female
  Weight: 51.7101 kg

DRUGS (5)
  1. REMICADE [Suspect]
     Indication: CROHN'S DISEASE
     Dosage: 5 MG/KG, INTRAVENOUS
     Route: 042
     Dates: start: 20031225
  2. REMICADE [Suspect]
     Indication: CROHN'S DISEASE
     Dosage: 5 MG/KG, INTRAVENOUS
     Route: 042
     Dates: start: 20040205
  3. IMURAN [Concomitant]
  4. FLAGYL (METRONIDAZOLE) PESSARY [Concomitant]
  5. PROTONIX [Concomitant]

REACTIONS (1)
  - HERPES ZOSTER [None]
